FAERS Safety Report 8979168 (Version 1)
Quarter: 2012Q4

REPORT INFORMATION
  Report Type: 
  Country: PE (occurrence: PE)
  Receive Date: 20121221
  Receipt Date: 20121221
  Transmission Date: 20130627
  Serious: Yes (Death)
  Sender: FDA-Public Use
  Company Number: PE-GLAXOSMITHKLINE-A1006235A

PATIENT
  Age: 77 Year
  Sex: Female

DRUGS (1)
  1. SEROXAT [Suspect]
     Indication: DEPRESSION
     Dosage: 20MG Per day
     Route: 048
     Dates: start: 20111028, end: 201203

REACTIONS (2)
  - Parkinson^s disease [Fatal]
  - Infection [Fatal]
